FAERS Safety Report 15717907 (Version 5)
Quarter: 2019Q3

REPORT INFORMATION
  Report Type: Spontaneous
  Country: US (occurrence: US)
  Receive Date: 20181213
  Receipt Date: 20190903
  Transmission Date: 20191004
  Serious: No
  Sender: FDA-Public Use
  Company Number: US-SA-2018SA337316

PATIENT
  Age: 23 Year
  Sex: Female

DRUGS (3)
  1. DUPIXENT [Suspect]
     Active Substance: DUPILUMAB
     Dosage: 300 MG, QOW
     Route: 058
     Dates: start: 20190214
  2. DUPIXENT [Suspect]
     Active Substance: DUPILUMAB
     Indication: DERMATITIS ATOPIC
     Dosage: 300 MG, QOW
     Route: 058
     Dates: start: 2017
  3. DUPIXENT [Suspect]
     Active Substance: DUPILUMAB
     Dosage: UNK UNK, QOW
     Route: 058
     Dates: start: 201810

REACTIONS (9)
  - Ocular hyperaemia [Unknown]
  - Conjunctivitis [Unknown]
  - Dermatitis atopic [Unknown]
  - Lacrimation increased [Unknown]
  - Dry eye [Unknown]
  - Eye pruritus [Unknown]
  - Skin irritation [Unknown]
  - Therapeutic response decreased [Unknown]
  - Dry skin [Unknown]
